FAERS Safety Report 6773017-X (Version None)
Quarter: 2010Q2

REPORT INFORMATION
  Report Type: 
  Country: None (occurrence: None)
  Receive Date: 20100616
  Receipt Date: 20100604
  Transmission Date: 20101027
  Serious: Yes (Other)
  Sender: FDA-Public Use
  Company Number: FR-PFIZER INC-2010070265

PATIENT
  Age: 85 Year
  Sex: Female

DRUGS (6)
  1. SALAZOPYRIN [Suspect]
     Dosage: 1 G, PER DAY
  2. DAFALGAN [Concomitant]
  3. LASIX [Concomitant]
  4. LEVOTHYROXINE SODIUM [Concomitant]
  5. NEO-MERCAZOLE TAB [Concomitant]
  6. OGASTRO [Concomitant]

REACTIONS (1)
  - SUBDURAL HAEMATOMA [None]
